FAERS Safety Report 6034587-2 (Version None)
Quarter: 2009Q1

REPORT INFORMATION
  Report Type: 
  Country: None (occurrence: None)
  Receive Date: 20090112
  Receipt Date: 20090102
  Transmission Date: 20090719
  Serious: Yes (Other)
  Sender: FDA-Public Use
  Company Number: GB-MERCK-0901USA00239

PATIENT
  Age: 62 Year
  Sex: Male

DRUGS (8)
  1. PRINIVIL [Suspect]
     Route: 048
  2. ASPIRIN [Suspect]
     Route: 048
  3. BENDROFLUAZIDE TABLETS [Suspect]
     Route: 048
  4. DIPYRIDAMOLE [Suspect]
     Route: 048
  5. GLICLAZIDE [Suspect]
     Route: 048
  6. ROSIGLITAZONE MALEATE [Suspect]
     Route: 048
  7. NIFEDIPINE [Suspect]
     Route: 048
  8. ROSUVASTATIN CALCIUM [Suspect]
     Route: 048

REACTIONS (2)
  - DIABETES MELLITUS INADEQUATE CONTROL [None]
  - WEIGHT FLUCTUATION [None]
